FAERS Safety Report 5377707-5 (Version None)
Quarter: 2007Q3

REPORT INFORMATION
  Report Type: 
  Country: None (occurrence: None)
  Receive Date: 20070703
  Receipt Date: 20070625
  Transmission Date: 20080115
  Serious: Yes (Hospitalization)
  Sender: FDA-Public Use
  Company Number: US-ROXANE LABORATORIES, INC-2007-BP-15903RO

PATIENT
  Age: 13 Year
  Sex: Male

DRUGS (8)
  1. METHOTREXATE [Suspect]
     Indication: CHEMOTHERAPY
     Route: 042
  2. METHOTREXATE [Suspect]
     Route: 037
  3. LEUCOVORIN CALCIUM [Suspect]
     Indication: CHEMOTHERAPY
  4. DEXAMETHASONE 0.5MG TAB [Suspect]
     Indication: CHEMOTHERAPY
     Route: 048
  5. CYCLOPHOSPHAMIDE [Suspect]
     Indication: CHEMOTHERAPY
     Route: 042
  6. CYTARABINE [Suspect]
     Indication: CHEMOTHERAPY
  7. HYDROCORTISONE [Suspect]
     Indication: CHEMOTHERAPY
  8. VINCRISTINE [Suspect]
     Indication: CHEMOTHERAPY
     Route: 042

REACTIONS (5)
  - BLOOD CREATININE INCREASED [None]
  - BLOOD URIC ACID INCREASED [None]
  - DRUG LEVEL ABOVE THERAPEUTIC [None]
  - MUCOSAL INFLAMMATION [None]
  - NEPHROPATHY TOXIC [None]
